FAERS Safety Report 8415835-8 (Version None)
Quarter: 2012Q2

REPORT INFORMATION
  Report Type: 
  Country: None (occurrence: None)
  Receive Date: 20120606
  Receipt Date: 20120530
  Transmission Date: 20120825
  Serious: Yes (Hospitalization)
  Sender: FDA-Public Use
  Company Number: US-NOVOPROD-352731

PATIENT
  Age: 5 Year
  Sex: Male
  Weight: 14.512 kg

DRUGS (2)
  1. NORDITROPIN FLEXPRO [Suspect]
     Dosage: 0.7 MG, QD
     Route: 058
     Dates: start: 20120501
  2. NORDITROPIN FLEXPRO [Suspect]
     Indication: PRODUCT USED FOR UNKNOWN INDICATION
     Dosage: 0.7 MG, QD
     Route: 058
     Dates: start: 20110622, end: 20120321

REACTIONS (1)
  - CYST [None]
